FAERS Safety Report 7088614-4 (Version None)
Quarter: 2010Q4

REPORT INFORMATION
  Report Type: 
  Country: None (occurrence: None)
  Receive Date: 20101028
  Receipt Date: 20101012
  Transmission Date: 20110411
  Serious: Yes (Death)
  Sender: FDA-Public Use
  Company Number: UTC-001561

PATIENT
  Age: 77 Year
  Sex: Female

DRUGS (1)
  1. REMODULIN [Suspect]
     Dosage: SUBCUTANEOUS
     Route: 058
     Dates: start: 20080509

REACTIONS (1)
  - SUDDEN DEATH [None]
